FAERS Safety Report 14647684 (Version 6)
Quarter: 2022Q3

REPORT INFORMATION
  Report Type: Spontaneous
  Country: RO (occurrence: RO)
  Receive Date: 20180316
  Receipt Date: 20220907
  Transmission Date: 20221026
  Serious: Yes (Hospitalization, Other)
  Sender: FDA-Public Use
  Company Number: RO-AUROBINDO-AUR-APL-2018-014480

PATIENT
  Age: 49 Year
  Sex: Female

DRUGS (14)
  1. ARIPIPRAZOLE [Suspect]
     Active Substance: ARIPIPRAZOLE
     Indication: Schizophrenia
     Dosage: UNK
     Route: 065
  2. DEXAMETHASONE [Suspect]
     Active Substance: DEXAMETHASONE
     Indication: Product used for unknown indication
     Dosage: UNK
     Route: 065
     Dates: start: 2015
  3. METHYLPREDNISOLONE [Suspect]
     Active Substance: METHYLPREDNISOLONE
     Indication: Visual acuity reduced
     Dosage: 1 GRAM, TWO TIMES A DAY (1 G, BID (DIVIDED IN TWO DOSES)
     Route: 042
  4. METHYLPREDNISOLONE [Suspect]
     Active Substance: METHYLPREDNISOLONE
     Indication: Retinal white dots syndrome
     Dosage: 32 MILLIGRAM, ONCE A DAY, DECREASING GRADUALLY
     Route: 048
  5. METHYLPREDNISOLONE [Suspect]
     Active Substance: METHYLPREDNISOLONE
     Dosage: 2 UNITS DAILY
     Route: 065
  6. METHYLPREDNISOLONE [Suspect]
     Active Substance: METHYLPREDNISOLONE
     Dosage: TAPPERED OFF
     Route: 048
     Dates: start: 2015, end: 2016
  7. PREDNISONE [Suspect]
     Active Substance: PREDNISONE
     Indication: Uveitis
     Dosage: UNK, LOW DOSE
     Route: 065
     Dates: start: 201605
  8. PREDNISONE [Suspect]
     Active Substance: PREDNISONE
     Indication: Choroiditis
  9. TRIAMCINOLONE [Suspect]
     Active Substance: TRIAMCINOLONE
     Indication: Product used for unknown indication
     Dosage: UNK
     Route: 065
     Dates: start: 2015, end: 2016
  10. BEVACIZUMAB [Concomitant]
     Active Substance: BEVACIZUMAB
     Indication: Product used for unknown indication
     Dosage: UNK
     Route: 065
     Dates: start: 2015
  11. CALCIUM [Concomitant]
     Active Substance: CALCIUM
     Indication: Product used for unknown indication
     Dosage: UNK
     Route: 065
  12. METHOTREXATE [Concomitant]
     Active Substance: METHOTREXATE
     Indication: Uveitis
     Dosage: 12.5 MILLIGRAM, EVERY WEEK (QW)
     Route: 065
     Dates: start: 201605
  13. METHOTREXATE [Concomitant]
     Active Substance: METHOTREXATE
     Indication: Choroiditis
  14. VANCOMYCIN [Concomitant]
     Active Substance: VANCOMYCIN
     Indication: Product used for unknown indication
     Dosage: UNK
     Route: 065

REACTIONS (7)
  - Choroiditis [Not Recovered/Not Resolved]
  - Uveitis [Not Recovered/Not Resolved]
  - Chorioretinopathy [Recovering/Resolving]
  - Birdshot chorioretinopathy [Recovering/Resolving]
  - Retinal white dots syndrome [Unknown]
  - Cushing^s syndrome [Unknown]
  - Drug ineffective [Unknown]
